FAERS Safety Report 18497715 (Version 1)
Quarter: 2020Q4

REPORT INFORMATION
  Report Type: Spontaneous
  Country: IT (occurrence: IT)
  Receive Date: 20201112
  Receipt Date: 20201112
  Transmission Date: 20210114
  Serious: Yes (Life-Threatening, Hospitalization)
  Sender: FDA-Public Use
  Company Number: IT-MYLANLABS-2020M1093921

PATIENT
  Age: 82 Year
  Sex: Female
  Weight: 65 kg

DRUGS (2)
  1. TRAMADOL. [Suspect]
     Active Substance: TRAMADOL
     Indication: ANALGESIC THERAPY
     Dosage: 200 MILLIGRAM, QD
     Route: 041
     Dates: start: 20201014, end: 20201016
  2. DROPERIDOL. [Concomitant]
     Active Substance: DROPERIDOL
     Indication: VOMITING
     Dosage: 1.25 MILLIGRAM, QD
     Route: 042
     Dates: start: 20201014, end: 20201016

REACTIONS (3)
  - Hypercapnic coma [Recovered/Resolved]
  - Dyspnoea [Recovered/Resolved]
  - Hypercapnia [Recovered/Resolved]

NARRATIVE: CASE EVENT DATE: 20201016
